FAERS Safety Report 5564585-4 (Version None)
Quarter: 2007Q4

REPORT INFORMATION
  Report Type: 
  Country: None (occurrence: None)
  Receive Date: 20071212
  Receipt Date: 20071126
  Transmission Date: 20080405
  Serious: Yes (Other)
  Sender: FDA-Public Use
  Company Number: A-US2007-17859

PATIENT
  Age: 6 Year
  Sex: Male

DRUGS (1)
  1. ZAVESCA [Suspect]
     Indication: GAUCHER'S DISEASE
     Dosage: 100 MG, BID; ORAL
     Route: 048
     Dates: start: 20070201, end: 20070901

REACTIONS (1)
  - CONVULSION [None]
